FAERS Safety Report 12358256 (Version 3)
Quarter: 2016Q2

REPORT INFORMATION
  Report Type: Report from Study
  Country: US (occurrence: US)
  Receive Date: 20160512
  Receipt Date: 20160620
  Transmission Date: 20160815
  Serious: Yes (Hospitalization, Other)
  Sender: FDA-Public Use
  Company Number: PHEH2016US011406

PATIENT
  Age: 71 Year
  Sex: Female
  Weight: 86 kg

DRUGS (1)
  1. GILENYA [Suspect]
     Active Substance: FINGOLIMOD HYDROCHLORIDE
     Indication: MULTIPLE SCLEROSIS
     Dosage: 0.5 MG, QD
     Route: 065
     Dates: start: 201603, end: 201604

REACTIONS (10)
  - Loss of consciousness [Unknown]
  - Fall [Unknown]
  - Concomitant disease aggravated [Unknown]
  - Joint injury [Unknown]
  - Vomiting [Unknown]
  - Seizure [Unknown]
  - Epilepsy [Unknown]
  - Swelling face [Unknown]
  - Cataract [Unknown]
  - Muscle tightness [Unknown]

NARRATIVE: CASE EVENT DATE: 201604
